FAERS Safety Report 14705599 (Version 1)
Quarter: 2018Q2

REPORT INFORMATION
  Report Type: Spontaneous
  Country: US (occurrence: US)
  Receive Date: 20180402
  Receipt Date: 20180402
  Transmission Date: 20180711
  Serious: No
  Sender: FDA-Public Use
  Company Number: US-BAYER-2018-062136

PATIENT
  Age: 90 Year
  Sex: Female
  Weight: 59 kg

DRUGS (1)
  1. ALEVE PM [Suspect]
     Active Substance: DIPHENHYDRAMINE HYDROCHLORIDE\NAPROXEN SODIUM
     Indication: PRODUCT USED FOR UNKNOWN INDICATION
     Dosage: UNK
     Route: 048
     Dates: start: 2017, end: 20180329

REACTIONS (2)
  - Product use in unapproved indication [Unknown]
  - Incorrect drug administration duration [Unknown]

NARRATIVE: CASE EVENT DATE: 2017
